FAERS Safety Report 7549481-5 (Version None)
Quarter: 2011Q2

REPORT INFORMATION
  Report Type: 
  Country: None (occurrence: None)
  Receive Date: 20110615
  Receipt Date: 20041025
  Transmission Date: 20111010
  Serious: Yes (Death, Hospitalization)
  Sender: FDA-Public Use
  Company Number: PHFR2004GB02282

PATIENT
  Sex: Male

DRUGS (5)
  1. CLOZARIL [Suspect]
     Dosage: 100 MG, UNK
     Route: 048
  2. CLOZARIL [Suspect]
     Indication: SCHIZOPHRENIA
     Dosage: 150MG/DAY
     Route: 048
     Dates: start: 20040511
  3. CLOZARIL [Suspect]
     Dosage: 250 MG/DAY
     Route: 048
  4. RANITIDINE [Concomitant]
  5. FLUPENTIXOL DECANOATE [Concomitant]
     Dosage: 100 MG, BIW
     Route: 030

REACTIONS (13)
  - MYOCARDITIS [None]
  - VOMITING [None]
  - GASTROENTERITIS VIRAL [None]
  - SUDDEN DEATH [None]
  - CIRCULATORY COLLAPSE [None]
  - DIARRHOEA [None]
  - LUNG INFECTION [None]
  - TACHYCARDIA [None]
  - PRODUCTIVE COUGH [None]
  - VIRAL MYOCARDITIS [None]
  - ARRHYTHMIA [None]
  - FATIGUE [None]
  - SEDATION [None]
